FAERS Safety Report 4976473-2 (Version None)
Quarter: 2006Q2

REPORT INFORMATION
  Report Type: 
  Country: None (occurrence: None)
  Receive Date: 20060412
  Receipt Date: 20060404
  Transmission Date: 20061013
  Serious: Yes (Hospitalization, Other)
  Sender: FDA-Public Use
  Company Number: 2006046782

PATIENT
  Sex: Male

DRUGS (6)
  1. LIPITOR [Suspect]
     Indication: BLOOD CHOLESTEROL INCREASED
     Dosage: 10 MG (10 MG, 1 IN 1 D),  ORAL
     Route: 048
  2. COREG [Concomitant]
  3. TORSEMIDE [Concomitant]
  4. FAMOTIDINE [Concomitant]
  5. AVANDIA [Concomitant]
  6. DETROL LA [Concomitant]

REACTIONS (13)
  - ANAEMIA [None]
  - BALANCE DISORDER [None]
  - CEREBROVASCULAR ACCIDENT [None]
  - DEPRESSION [None]
  - DIARRHOEA [None]
  - FALL [None]
  - FLATULENCE [None]
  - FREQUENT BOWEL MOVEMENTS [None]
  - GASTRIC DISORDER [None]
  - JOINT INJURY [None]
  - MUSCLE SPASMS [None]
  - RECTAL DISCHARGE [None]
  - WEIGHT DECREASED [None]
